FAERS Safety Report 23063943 (Version 1)
Quarter: 2023Q4

REPORT INFORMATION
  Report Type: Spontaneous
  Country: US (occurrence: None)
  Receive Date: 20231013
  Receipt Date: 20231013
  Transmission Date: 20240109
  Serious: Yes (Other)
  Sender: FDA-Public Use
  Company Number: 2023A229188

PATIENT
  Sex: Male

DRUGS (1)
  1. TEZSPIRE [Suspect]
     Active Substance: TEZEPELUMAB-EKKO
     Indication: Asthma
     Dosage: 210ML/KG EVERY FOUR WEEKS
     Route: 058
     Dates: start: 20230929

REACTIONS (3)
  - Lymphadenopathy [Unknown]
  - Night sweats [Unknown]
  - Skin infection [Unknown]

NARRATIVE: CASE EVENT DATE: 20231003
